FAERS Safety Report 9176591 (Version 1)
Quarter: 2013Q1

REPORT INFORMATION
  Report Type: Spontaneous
  Country: IN (occurrence: IN)
  Receive Date: 20130321
  Receipt Date: 20130321
  Transmission Date: 20140127
  Serious: Yes (Other)
  Sender: FDA-Public Use
  Company Number: IN-ROXANE LABORATORIES, INC.-2013-RO-00395RO

PATIENT
  Age: 57 Year
  Sex: Female

DRUGS (1)
  1. CLOPIDOGREL [Suspect]
     Indication: CORONARY ARTERY DISEASE

REACTIONS (1)
  - Leukocytoclastic vasculitis [Recovered/Resolved]
